FAERS Safety Report 17419282 (Version 4)
Quarter: 2020Q3

REPORT INFORMATION
  Report Type: Spontaneous
  Country: US (occurrence: US)
  Receive Date: 20200214
  Receipt Date: 20200703
  Transmission Date: 20201102
  Serious: No
  Sender: FDA-Public Use
  Company Number: US-VERTEX PHARMACEUTICALS-2020-002702

PATIENT
  Age: 11 Year
  Sex: Female
  Weight: 84.81 kg

DRUGS (6)
  1. VITAMIN D [COLECALCIFEROL] [Concomitant]
     Active Substance: CHOLECALCIFEROL
  2. PULMOZYME [Concomitant]
     Active Substance: DORNASE ALFA
  3. KALYDECO [Suspect]
     Active Substance: IVACAFTOR
     Indication: CYSTIC FIBROSIS
     Dosage: 150 MG, BID
     Route: 048
     Dates: start: 20171214
  4. ADEK [Concomitant]
     Dosage: CHEWABLE
  5. KITABIS PAK [Concomitant]
     Active Substance: TOBRAMYCIN
     Dosage: ONE MONTH ON, ONE MONTH OFF
  6. ZENPEP [Concomitant]
     Active Substance: PANCRELIPASE AMYLASE\PANCRELIPASE LIPASE\PANCRELIPASE PROTEASE
     Dosage: 40,000?126,000?158,000 UNITS
     Dates: start: 2017

REACTIONS (6)
  - Weight increased [Recovering/Resolving]
  - Haemoptysis [Unknown]
  - Depression [Not Recovered/Not Resolved]
  - Social anxiety disorder [Not Recovered/Not Resolved]
  - Constipation [Unknown]
  - Decreased appetite [Not Recovered/Not Resolved]

NARRATIVE: CASE EVENT DATE: 201801
